FAERS Safety Report 15356164 (Version 2)
Quarter: 2019Q3

REPORT INFORMATION
  Report Type: Report from Study
  Country: CO (occurrence: CO)
  Receive Date: 20180906
  Receipt Date: 20190819
  Transmission Date: 20191004
  Serious: Yes (Hospitalization, Other)
  Sender: FDA-Public Use
  Company Number: CO-AMGEN-COLSL2018119215

PATIENT
  Age: 58 Year
  Sex: Male

DRUGS (2)
  1. KYPROLIS [Suspect]
     Active Substance: CARFILZOMIB
     Indication: PLASMA CELL MYELOMA
     Dosage: 50 MG (OTHER), UNK
     Route: 042
     Dates: start: 20180711
  2. KYPROLIS [Suspect]
     Active Substance: CARFILZOMIB
     Dosage: 38 MILLIGRAM (OTHER)
     Route: 042
     Dates: start: 20190611

REACTIONS (2)
  - Platelet count decreased [Not Recovered/Not Resolved]
  - Bone pain [Not Recovered/Not Resolved]

NARRATIVE: CASE EVENT DATE: 2018
